FAERS Safety Report 20027047 (Version 1)
Quarter: 2021Q4

REPORT INFORMATION
  Report Type: Spontaneous
  Country: US (occurrence: US)
  Receive Date: 20211103
  Receipt Date: 20211103
  Transmission Date: 20220303
  Serious: Yes (Hospitalization)
  Sender: FDA-Public Use
  Company Number: US-HETERO-HET2021US02032

PATIENT
  Age: 30 Year
  Sex: Female

DRUGS (1)
  1. HYDROXYZINE [Suspect]
     Active Substance: HYDROXYZINE HYDROCHLORIDE
     Indication: Suicide attempt
     Dosage: 25 MG (90 TABLETS) (INJESTED ABOUT 2 GRAMS)
     Route: 065

REACTIONS (4)
  - Intentional overdose [Recovering/Resolving]
  - Distributive shock [Recovering/Resolving]
  - Acute respiratory distress syndrome [Recovering/Resolving]
  - Toxicity to various agents [Recovering/Resolving]
